FAERS Safety Report 7916474-5 (Version None)
Quarter: 2011Q4

REPORT INFORMATION
  Report Type: 
  Country: None (occurrence: None)
  Receive Date: 20111114
  Receipt Date: 20111031
  Transmission Date: 20120403
  Serious: Yes (Other)
  Sender: FDA-Public Use
  Company Number: CRC-11-163

PATIENT
  Sex: Female
  Weight: 62.1428 kg

DRUGS (2)
  1. VENLAFAXINE [Suspect]
     Indication: ANXIETY
     Dosage: 37.5MG; DAILY; ORAL
     Route: 048
     Dates: start: 20110615, end: 20110616
  2. XANAX [Concomitant]

REACTIONS (7)
  - SOMNOLENCE [None]
  - VISION BLURRED [None]
  - APHAGIA [None]
  - NAUSEA [None]
  - DIZZINESS [None]
  - VOMITING [None]
  - IMPAIRED WORK ABILITY [None]
